FAERS Safety Report 16485601 (Version 1)
Quarter: 2019Q2

REPORT INFORMATION
  Report Type: Spontaneous
  Country: CA (occurrence: CA)
  Receive Date: 20190627
  Receipt Date: 20190627
  Transmission Date: 20190711
  Serious: Yes (Other)
  Sender: FDA-Public Use
  Company Number: CA-TEVA-2019-CA-1067652

PATIENT
  Age: 61 Year
  Sex: Female

DRUGS (6)
  1. OXYNEO [Suspect]
     Active Substance: OXYCODONE
     Indication: COMPLEX REGIONAL PAIN SYNDROME
     Dosage: 30 MILLIGRAM DAILY;
     Route: 065
  2. OXYCODONE [Suspect]
     Active Substance: OXYCODONE
     Indication: COMPLEX REGIONAL PAIN SYNDROME
     Dosage: 30 MILLIGRAM DAILY;
     Route: 065
  3. OXYCODONE [Suspect]
     Active Substance: OXYCODONE
     Indication: LUNG CANCER METASTATIC
  4. OXYNEO [Suspect]
     Active Substance: OXYCODONE
     Dosage: 130 MILLIGRAM DAILY;
     Route: 065
  5. OXYCODONE [Suspect]
     Active Substance: OXYCODONE
     Indication: BONE PAIN
  6. OXYCODONE HYDROCHLORIDE. [Suspect]
     Active Substance: OXYCODONE HYDROCHLORIDE
     Indication: BREAKTHROUGH PAIN
     Route: 065

REACTIONS (7)
  - Sedation [Unknown]
  - Lung adenocarcinoma [Unknown]
  - Metastases to bone [Unknown]
  - Metastases to lymph nodes [Unknown]
  - Bone pain [Unknown]
  - Off label use [Unknown]
  - Metastases to spine [Unknown]
